FAERS Safety Report 21685810 (Version 1)
Quarter: 2022Q4

REPORT INFORMATION
  Report Type: Spontaneous
  Country: ES (occurrence: ES)
  Receive Date: 20221206
  Receipt Date: 20221206
  Transmission Date: 20230113
  Serious: Yes (Other)
  Sender: FDA-Public Use
  Company Number: ES-SA-2022SA487034

PATIENT
  Age: 24 Year
  Sex: Female

DRUGS (2)
  1. ALEMTUZUMAB [Suspect]
     Active Substance: ALEMTUZUMAB
     Indication: Relapsing multiple sclerosis
     Dosage: UNK
  2. METHYLPREDNISOLONE [Concomitant]
     Active Substance: METHYLPREDNISOLONE
     Indication: Multiple sclerosis relapse

REACTIONS (4)
  - Multiple sclerosis relapse [Unknown]
  - Tumefactive multiple sclerosis [Unknown]
  - Paradoxical drug reaction [Unknown]
  - Cognitive disorder [Unknown]
